FAERS Safety Report 15891650 (Version 3)
Quarter: 2019Q1

REPORT INFORMATION
  Report Type: Spontaneous
  Country: TR (occurrence: TR)
  Receive Date: 20190130
  Receipt Date: 20190307
  Transmission Date: 20190417
  Serious: Yes (Other)
  Sender: FDA-Public Use
  Company Number: PHHY2019TR017402

PATIENT
  Age: 55 Year
  Sex: Male

DRUGS (1)
  1. FORADIL COMBI FIX [Suspect]
     Active Substance: BUDESONIDE\FORMOTEROL FUMARATE
     Indication: ASTHMA
     Dosage: 2 DF, QD
     Route: 065

REACTIONS (2)
  - Respiratory distress [Not Recovered/Not Resolved]
  - Drug ineffective [Unknown]
